FAERS Safety Report 5106308-9 (Version None)
Quarter: 2006Q3

REPORT INFORMATION
  Report Type: 
  Country: None (occurrence: None)
  Receive Date: 20060918
  Receipt Date: 20060907
  Transmission Date: 20061208
  Serious: Yes (Hospitalization, Other)
  Sender: FDA-Public Use
  Company Number: US-JNJFOC-20060200411

PATIENT
  Sex: Female
  Weight: 68.04 kg

DRUGS (6)
  1. LEVAQUIN [Suspect]
     Indication: PNEUMONIA
     Route: 048
     Dates: start: 20051122, end: 20051202
  2. LEVAQUIN [Suspect]
     Indication: BRONCHITIS
     Route: 048
     Dates: start: 20051122, end: 20051202
  3. PREDNISONE [Concomitant]
  4. AMOXICILLIN [Concomitant]
     Indication: INFECTION
  5. VICODIN [Concomitant]
     Indication: PAIN
  6. NEURONTIN [Concomitant]
     Indication: PAIN

REACTIONS (3)
  - LEUKOCYTOCLASTIC VASCULITIS [None]
  - MITRAL VALVE STENOSIS [None]
  - PYREXIA [None]
